FAERS Safety Report 15533995 (Version 1)
Quarter: 2018Q4

REPORT INFORMATION
  Report Type: Report from Study
  Country: US (occurrence: US)
  Receive Date: 20181019
  Receipt Date: 20181019
  Transmission Date: 20190205
  Serious: Yes (Life-Threatening, Hospitalization, Other)
  Sender: FDA-Public Use
  Company Number: US-BRISTOL-MYERS SQUIBB COMPANY-BMS-2018-081547

PATIENT
  Age: 60 Year
  Sex: Male
  Weight: 77 kg

DRUGS (3)
  1. CABIRALIZUMAB [Suspect]
     Active Substance: CABIRALIZUMAB
     Indication: RENAL CELL CARCINOMA
     Dosage: 4 MG/KG, Q2WK
     Route: 042
     Dates: start: 20180808, end: 20180822
  2. NIVOLUMAB [Suspect]
     Active Substance: NIVOLUMAB
     Indication: RENAL CELL CARCINOMA
     Dosage: 240 MG, Q2WK
     Route: 042
     Dates: start: 20180808, end: 20180822
  3. APX005M [Suspect]
     Active Substance: INVESTIGATIONAL PRODUCT
     Indication: RENAL CELL CARCINOMA
     Dosage: 0.03 MG/KG, Q2WK
     Route: 042
     Dates: start: 20180808, end: 20180822

REACTIONS (5)
  - Pneumonia [Unknown]
  - Central nervous system abscess [Recovering/Resolving]
  - Acute respiratory distress syndrome [Unknown]
  - Cardiac dysfunction [Recovered/Resolved]
  - Acute kidney injury [Not Recovered/Not Resolved]

NARRATIVE: CASE EVENT DATE: 20180831
